FAERS Safety Report 6674410-6 (Version None)
Quarter: 2010Q2

REPORT INFORMATION
  Report Type: 
  Country: None (occurrence: None)
  Receive Date: 20100409
  Receipt Date: 20100330
  Transmission Date: 20101027
  Serious: Yes (Other)
  Sender: FDA-Public Use
  Company Number: UA-EISAI INC.-E3810-03675-SPO-UA

PATIENT
  Sex: Male

DRUGS (1)
  1. RABEPRAZOLE SODIUM [Suspect]
     Route: 048
     Dates: start: 20100301, end: 20100329

REACTIONS (1)
  - ASTHMA [None]
